FAERS Safety Report 15715642 (Version 2)
Quarter: 2019Q1

REPORT INFORMATION
  Report Type: Report from Study
  Country: US (occurrence: US)
  Receive Date: 20181212
  Receipt Date: 20190220
  Transmission Date: 20190417
  Serious: Yes (Other)
  Sender: FDA-Public Use
  Company Number: US-GILEAD-2018-0379844

PATIENT
  Age: 50 Year
  Sex: Male

DRUGS (2)
  1. AMBRISENTAN [Suspect]
     Active Substance: AMBRISENTAN
     Indication: PRODUCT USED FOR UNKNOWN INDICATION
     Dosage: 10 MG, QD
     Route: 065
     Dates: start: 20170505
  2. ELIQUIS [Concomitant]
     Active Substance: APIXABAN

REACTIONS (5)
  - Palpitations [Not Recovered/Not Resolved]
  - Prostatic pain [Not Recovered/Not Resolved]
  - Prostate cancer [Unknown]
  - Back disorder [Not Recovered/Not Resolved]
  - Dyspnoea [Not Recovered/Not Resolved]
